FAERS Safety Report 8604934 (Version 3)
Quarter: 2012Q4

REPORT INFORMATION
  Report Type: Report from Study
  Country: US (occurrence: US)
  Receive Date: 20120608
  Receipt Date: 20121226
  Transmission Date: 20130627
  Serious: Yes (Hospitalization)
  Sender: FDA-Public Use
  Company Number: US-ROCHE-1075979

PATIENT
  Age: 49 Year
  Sex: Female

DRUGS (11)
  1. PEG-INTERFERON ALFA 2A [Suspect]
     Indication: HEPATITIS C
     Dosage: 180 mcg 1 in i week
     Route: 058
     Dates: start: 20120502, end: 20120524
  2. RIBAVIRIN [Suspect]
     Indication: HEPATITIS C
     Route: 048
     Dates: start: 20120502, end: 20120524
  3. VX-950 [Suspect]
     Indication: HEPATITIS C
     Route: 048
     Dates: start: 20120502, end: 20120524
  4. XANAX [Concomitant]
  5. HYDROCODONE BITARTRATE [Concomitant]
  6. FISH OIL [Concomitant]
  7. MORPHINE SULFATE [Concomitant]
  8. PAXIL [Concomitant]
  9. TRAZODONE [Concomitant]
  10. VITAMIN B12 [Concomitant]
  11. MULTIVITAMIN [Concomitant]

REACTIONS (4)
  - Pneumonia [Recovered/Resolved]
  - Hypoxia [Recovered/Resolved]
  - Hypotension [Recovered/Resolved]
  - Anaemia [Recovered/Resolved]
